FAERS Safety Report 6124643-2 (Version None)
Quarter: 2009Q1

REPORT INFORMATION
  Report Type: 
  Country: None (occurrence: None)
  Receive Date: 20090319
  Receipt Date: 20090313
  Transmission Date: 20090719
  Serious: Yes (Hospitalization)
  Sender: FDA-Public Use
  Company Number: B0564794A

PATIENT
  Age: 65 Year
  Sex: Female

DRUGS (1)
  1. ZOVIRAX [Suspect]
     Route: 042
     Dates: start: 20090213, end: 20090215

REACTIONS (6)
  - DIPLOPIA [None]
  - DIZZINESS [None]
  - HALLUCINATIONS, MIXED [None]
  - MALAISE [None]
  - NAUSEA [None]
  - RENAL FAILURE ACUTE [None]
